FAERS Safety Report 6293340-5 (Version None)
Quarter: 2009Q3

REPORT INFORMATION
  Report Type: 
  Country: None (occurrence: None)
  Receive Date: 20090731
  Receipt Date: 20090723
  Transmission Date: 20100115
  Serious: Yes (Other)
  Sender: FDA-Public Use
  Company Number: PHHY2009BR30928

PATIENT
  Age: 91 Year
  Sex: Male

DRUGS (1)
  1. COMTAN [Suspect]
     Indication: DEMENTIA ALZHEIMER'S TYPE
     Dosage: 200 MG, UNK
     Dates: start: 20081101

REACTIONS (1)
  - ABNORMAL BEHAVIOUR [None]
